FAERS Safety Report 24679991 (Version 1)
Quarter: 2024Q4

REPORT INFORMATION
  Report Type: Spontaneous
  Country: ES (occurrence: ES)
  Receive Date: 20241129
  Receipt Date: 20241129
  Transmission Date: 20250115
  Serious: Yes (Life-Threatening, Hospitalization)
  Sender: ORGANON
  Company Number: None

PATIENT
  Age: 72 Year
  Sex: Female

DRUGS (4)
  1. SINEMET [Suspect]
     Active Substance: CARBIDOPA\LEVODOPA
     Indication: Parkinson^s disease
     Dosage: 100 MILLIGRAM, QD
     Route: 048
     Dates: start: 2014
  2. APOMORPHINE HYDROCHLORIDE [Suspect]
     Active Substance: APOMORPHINE HYDROCHLORIDE
     Indication: Parkinson^s disease
     Dosage: APOMORPHINE BOMB FROM 8H TO 22H AT 1,7ML/H (8,5MG/H) AND FROM 22H TO 8H AT 0,9 ML/H (4,5 MG/H) (SOLU
     Route: 058
     Dates: start: 2022, end: 2024
  3. XADAGO [Suspect]
     Active Substance: SAFINAMIDE MESYLATE
     Indication: Parkinson^s disease
     Dosage: 100 MILLIGRAM, Q24H (30 TABLETS)
     Route: 048
     Dates: start: 2020
  4. SINEMET CR [Concomitant]
     Active Substance: CARBIDOPA\LEVODOPA
     Indication: Parkinson^s disease
     Dosage: 50 MILLIGRAM, Q24H (PROLONGED-RELEASE TABLETS) 100 TABLETS)
     Route: 048
     Dates: start: 2020

REACTIONS (1)
  - Haemolytic anaemia [Recovering/Resolving]

NARRATIVE: CASE EVENT DATE: 20241001
